FAERS Safety Report 6755511 (Version 4)
Quarter: 2014Q2

REPORT INFORMATION
  Report Type: Spontaneous
  Country: AU (occurrence: AU)
  Receive Date: 20080912
  Receipt Date: 20131018
  Transmission Date: 20141212
  Serious: Yes (Other)
  Sender: FDA-Public Use
  Company Number: AU-PFIZER INC-2008074032

PATIENT
  Sex: Male

DRUGS (2)
  1. DILANTIN [Suspect]
     Dosage: UNK
  2. DILANTIN [Suspect]
     Dosage: UNK

REACTIONS (8)
  - Vitamin D deficiency [Unknown]
  - Arthralgia [Unknown]
  - Neck pain [Unknown]
  - Calcium deficiency [Unknown]
  - Hypotonia [Unknown]
  - Arthropathy [Unknown]
  - Upper limb fracture [Unknown]
  - Knee deformity [Unknown]
